FAERS Safety Report 9506934 (Version 2)
Quarter: 2013Q4

REPORT INFORMATION
  Report Type: Spontaneous
  Country: US (occurrence: US)
  Receive Date: 20130909
  Receipt Date: 20131118
  Transmission Date: 20140711
  Serious: Yes (Other)
  Sender: FDA-Public Use
  Company Number: US-JNJFOC-20130900235

PATIENT
  Age: 33 Year
  Sex: Female

DRUGS (2)
  1. TYLENOL [Suspect]
     Route: 048
  2. TYLENOL [Suspect]
     Indication: PRODUCT USED FOR UNKNOWN INDICATION
     Dosage: ONE TO TWO TABLETS APPROXIMATELY FOR 1X3/YEARS FOR 9 YEARS
     Route: 048
     Dates: start: 1990

REACTIONS (6)
  - Chromaturia [Recovering/Resolving]
  - Fatigue [Recovering/Resolving]
  - Hepatic failure [Unknown]
  - Overdose [Recovering/Resolving]
  - Vomiting [Recovering/Resolving]
  - Decreased appetite [Recovering/Resolving]
